FAERS Safety Report 9300863 (Version 1)
Quarter: 2013Q2

REPORT INFORMATION
  Report Type: Spontaneous
  Country: US (occurrence: US)
  Receive Date: 20130521
  Receipt Date: 20130521
  Transmission Date: 20140414
  Serious: Yes (Hospitalization, Other)
  Sender: FDA-Public Use
  Company Number: US-PFIZER INC-2013153621

PATIENT
  Sex: Male

DRUGS (2)
  1. LIPITOR [Suspect]
     Dosage: UNK
  2. ATORVASTATIN CALCIUM [Suspect]
     Dosage: UNK

REACTIONS (6)
  - Abdominal pain upper [Unknown]
  - Apparent death [Unknown]
  - Headache [Unknown]
  - Back pain [Unknown]
  - Myalgia [Unknown]
  - Malaise [Unknown]
